FAERS Safety Report 7005110-0 (Version None)
Quarter: 2010Q3

REPORT INFORMATION
  Report Type: 
  Country: None (occurrence: None)
  Receive Date: 20100921
  Receipt Date: 20100910
  Transmission Date: 20110219
  Serious: Yes (Life-Threatening, Hospitalization, Other)
  Sender: FDA-Public Use
  Company Number: JP-JNJFOC-20091008184

PATIENT
  Sex: Male

DRUGS (8)
  1. CRAVIT [Suspect]
     Indication: RESPIRATORY DISORDER
     Route: 048
     Dates: start: 20090909, end: 20091016
  2. CRAVIT [Suspect]
     Route: 048
     Dates: start: 20090909, end: 20091016
  3. CRAVIT [Suspect]
     Indication: INFECTION PARASITIC
     Route: 048
     Dates: start: 20090909, end: 20091016
  4. CRAVIT [Suspect]
     Route: 048
     Dates: start: 20090909, end: 20091016
  5. NOVORAPID FLEXPEN [Suspect]
     Indication: DIABETES MELLITUS
     Route: 058
  6. ACTOS [Suspect]
     Indication: DIABETES MELLITUS
     Route: 048
  7. MUCODYNE [Concomitant]
     Route: 048
     Dates: start: 20091015, end: 20091016
  8. LIGHTGEN T [Concomitant]
     Route: 048
     Dates: start: 20091015, end: 20091016

REACTIONS (3)
  - HYPOGLYCAEMIA [None]
  - HYPOGLYCAEMIC UNCONSCIOUSNESS [None]
  - SNORING [None]
